FAERS Safety Report 14205834 (Version 1)
Quarter: 2017Q4

REPORT INFORMATION
  Report Type: Spontaneous
  Country: JP (occurrence: JP)
  Receive Date: 20171120
  Receipt Date: 20171120
  Transmission Date: 20180321
  Serious: Yes (Hospitalization)
  Sender: FDA-Public Use
  Company Number: JP-MITSUBISHI TANABE PHARMA CORPORATION-MTPC2017-0022290

PATIENT
  Age: 8 Decade
  Sex: Male

DRUGS (2)
  1. RADICUT [Suspect]
     Active Substance: EDARAVONE
     Route: 051
     Dates: start: 20171023
  2. RADICUT [Suspect]
     Active Substance: EDARAVONE
     Indication: CEREBRAL INFARCTION
     Route: 051
     Dates: start: 20171006, end: 20171019

REACTIONS (1)
  - Cerebral infarction [Recovering/Resolving]
